FAERS Safety Report 10587476 (Version 1)
Quarter: 2014Q4

REPORT INFORMATION
  Report Type: Spontaneous
  Country: US (occurrence: US)
  Receive Date: 20141117
  Receipt Date: 20141117
  Transmission Date: 20150529
  Serious: No
  Sender: FDA-Public Use
  Company Number: US-PFIZER INC-2014315424

PATIENT
  Age: 5 Year
  Sex: Male
  Weight: 23 kg

DRUGS (4)
  1. CLONIDINE. [Concomitant]
     Active Substance: CLONIDINE
     Indication: SLEEP DISORDER
     Dosage: 0.1 MG (HALF A PILL) AT BEDTIME, DAILY
  2. QUILLIVANT XR [Suspect]
     Active Substance: METHYLPHENIDATE HYDROCHLORIDE
     Indication: ATTENTION DEFICIT/HYPERACTIVITY DISORDER
     Dosage: 5 MG/ML, 2X/DAY
  3. STRATTERA [Concomitant]
     Active Substance: ATOMOXETINE HYDROCHLORIDE
     Indication: ANGER
     Dosage: 10 MG, DAILY
  4. DEXMETHYLPHENIDATE [Suspect]
     Active Substance: DEXMETHYLPHENIDATE HYDROCHLORIDE
     Indication: ATTENTION DEFICIT/HYPERACTIVITY DISORDER
     Dosage: 10 MG, 2X/DAY
     Dates: start: 201408

REACTIONS (2)
  - Product use issue [Unknown]
  - Feeling abnormal [Unknown]
